FAERS Safety Report 23835262 (Version 1)
Quarter: 2024Q2

REPORT INFORMATION
  Report Type: Spontaneous
  Country: US (occurrence: US)
  Receive Date: 20240509
  Receipt Date: 20240509
  Transmission Date: 20240716
  Serious: Yes (Hospitalization, Other)
  Sender: FDA-Public Use
  Company Number: US-BRISTOL-MYERS SQUIBB COMPANY-2024-071911

PATIENT
  Age: 60 Year
  Sex: Female
  Weight: 171.0 kg

DRUGS (1)
  1. POMALYST [Suspect]
     Active Substance: POMALIDOMIDE
     Indication: Plasma cell myeloma recurrent
     Dosage: DAILY 3 WEEKS ON 1  WEEK OFF
     Route: 048

REACTIONS (1)
  - Pneumonia [Recovered/Resolved]
